FAERS Safety Report 9554030 (Version 1)
Quarter: 2013Q3

REPORT INFORMATION
  Report Type: Spontaneous
  Country: FR (occurrence: FR)
  Receive Date: 20130925
  Receipt Date: 20130925
  Transmission Date: 20140515
  Serious: Yes (Hospitalization)
  Sender: FDA-Public Use
  Company Number: FR-GLAXOSMITHKLINE-B0922913A

PATIENT
  Age: 66 Year
  Sex: Male

DRUGS (7)
  1. ZELITREX [Suspect]
     Indication: VIRAL INFECTION
     Dosage: 500MG TWICE PER DAY
     Route: 048
     Dates: start: 20130726, end: 20130729
  2. RITUXIMAB [Concomitant]
     Indication: B-CELL LYMPHOMA
     Dates: start: 20130723, end: 20130723
  3. CARBOPLATIN [Concomitant]
     Indication: B-CELL LYMPHOMA
     Dates: start: 20130723, end: 20130723
  4. ARACYTINE [Concomitant]
     Indication: B-CELL LYMPHOMA
     Dates: start: 20130724, end: 20130724
  5. ZOPHREN [Concomitant]
     Dates: start: 20130723, end: 20130726
  6. DEXAMETHASONE [Concomitant]
     Dates: start: 20130723, end: 20130726
  7. BACTRIM [Concomitant]
     Dates: end: 20130805

REACTIONS (5)
  - Rash [Recovering/Resolving]
  - Hypotension [Recovered/Resolved]
  - Pyrexia [Recovered/Resolved]
  - Interstitial lung disease [Recovering/Resolving]
  - Pruritus [Recovering/Resolving]
